FAERS Safety Report 7553440-6 (Version None)
Quarter: 2011Q2

REPORT INFORMATION
  Report Type: 
  Country: None (occurrence: None)
  Receive Date: 20110617
  Receipt Date: 20110603
  Transmission Date: 20111010
  Serious: Yes (Life-Threatening)
  Sender: FDA-Public Use
  Company Number: LV-RANBAXY-2011RR-45394

PATIENT
  Age: 73 Year
  Sex: Male
  Weight: 63 kg

DRUGS (1)
  1. FULSED INJECTION 5MG/ML [Suspect]
     Indication: PREMEDICATION
     Dosage: 1.25 MG, UNK
     Route: 042
     Dates: start: 20110331

REACTIONS (2)
  - ANXIETY [None]
  - DYSPNOEA [None]
